FAERS Safety Report 12482677 (Version 1)
Quarter: 2016Q2

REPORT INFORMATION
  Report Type: Spontaneous
  Country: IT (occurrence: IT)
  Receive Date: 20160620
  Receipt Date: 20160620
  Transmission Date: 20160815
  Serious: Yes (Hospitalization)
  Sender: FDA-Public Use
  Company Number: IT-009507513-1604ITA016741

PATIENT
  Age: 83 Year
  Sex: Female

DRUGS (6)
  1. CARDIRENE [Concomitant]
     Active Substance: ASPIRIN DL-LYSINE
     Route: 048
  2. METHOTREXATE (METHOTREXATE SODIUM) [Concomitant]
     Active Substance: METHOTREXATE SODIUM
     Dosage: UNK
     Route: 058
  3. CARVEDILOL. [Concomitant]
     Active Substance: CARVEDILOL
     Route: 048
  4. LIPONORM 10 MG COMPRESSE RIVESTITE CON FILM [Concomitant]
     Route: 048
  5. NEO-LOTAN PLUS 100MG + 25MG COMPRESSE RIVESTITE CON FILM [Suspect]
     Active Substance: HYDROCHLOROTHIAZIDE\LOSARTAN POTASSIUM
     Indication: HYPERTENSION
     Dosage: 1 DF, QD (1 DOSE UNIT DAILY)
     Route: 048
     Dates: start: 20160101, end: 20160414
  6. FOLINA (FOLIC ACID) [Concomitant]
     Active Substance: FOLIC ACID
     Route: 048

REACTIONS (4)
  - Hot flush [Recovering/Resolving]
  - Presyncope [Recovering/Resolving]
  - Hypokalaemia [Recovering/Resolving]
  - Hyponatraemia [Recovering/Resolving]

NARRATIVE: CASE EVENT DATE: 20160414
